FAERS Safety Report 24162079 (Version 1)
Quarter: 2024Q3

REPORT INFORMATION
  Report Type: Spontaneous
  Country: DE (occurrence: DE)
  Receive Date: 20240801
  Receipt Date: 20240801
  Transmission Date: 20241017
  Serious: Yes (Other)
  Sender: AUROBINDO
  Company Number: DE-BFARM-24005167

PATIENT
  Age: 61 Year
  Sex: Male

DRUGS (1)
  1. CLOZAPINE [Suspect]
     Active Substance: CLOZAPINE
     Indication: Product used for unknown indication
     Dosage: UNK (MOST RECENTLY 25MG DAILY)
     Route: 065

REACTIONS (3)
  - Erectile dysfunction [Unknown]
  - Aggression [Unknown]
  - Illusion [Unknown]
